FAERS Safety Report 4893437-8 (Version None)
Quarter: 2006Q1

REPORT INFORMATION
  Report Type: 
  Country: None (occurrence: None)
  Receive Date: 20060127
  Receipt Date: 20060120
  Transmission Date: 20060701
  Serious: Yes (Other)
  Sender: FDA-Public Use
  Company Number: US-BRISTOL-MYERS SQUIBB COMPANY-13255823

PATIENT
  Age: 82 Year
  Sex: Male
  Weight: 108 kg

DRUGS (10)
  1. ERBITUX [Suspect]
     Indication: COLORECTAL CANCER
     Route: 042
     Dates: start: 20060116, end: 20060116
  2. BENADRYL [Concomitant]
     Indication: PREMEDICATION
     Route: 042
     Dates: start: 20060116, end: 20060116
  3. ALBUTEROL SULFATE AUTOHALER [Concomitant]
     Route: 055
  4. PRILOSEC [Concomitant]
  5. LOVASTATIN [Concomitant]
  6. LISINOPRIL [Concomitant]
  7. HYTRIN [Concomitant]
  8. ALLOPURINOL [Concomitant]
  9. ATIVAN [Concomitant]
  10. FOLIC ACID [Concomitant]

REACTIONS (4)
  - ASTHENIA [None]
  - CONFUSIONAL STATE [None]
  - NUCHAL RIGIDITY [None]
  - PYREXIA [None]
